FAERS Safety Report 16823165 (Version 1)
Quarter: 2019Q3

REPORT INFORMATION
  Report Type: Spontaneous
  Country: US (occurrence: US)
  Receive Date: 20190918
  Receipt Date: 20190918
  Transmission Date: 20191005
  Serious: No
  Sender: FDA-Public Use
  Company Number: US-OCULAR THERAPEUTIX-2019OCX00014

PATIENT
  Age: 70 Year
  Sex: Female
  Weight: 56.69 kg

DRUGS (1)
  1. DEXTENZA [Suspect]
     Active Substance: DEXAMETHASONE
     Dosage: UNK
     Dates: start: 20190625

REACTIONS (6)
  - Iridocyclitis [Recovered/Resolved]
  - Product use issue [Recovered/Resolved]
  - Iritis [Recovered/Resolved]
  - Stomatitis [Recovered/Resolved]
  - Gingival ulceration [Recovered/Resolved]
  - Gingivitis [Recovered/Resolved]

NARRATIVE: CASE EVENT DATE: 20190625
